FAERS Safety Report 25496293 (Version 2)
Quarter: 2025Q3

REPORT INFORMATION
  Report Type: Spontaneous
  Country: GB (occurrence: GB)
  Receive Date: 20250630
  Receipt Date: 20250714
  Transmission Date: 20251021
  Serious: Yes (Disabling)
  Sender: SANDOZ
  Company Number: GB-JNJFOC-20250611184

PATIENT
  Age: 38 Year
  Sex: Female

DRUGS (2)
  1. PEMETREXED [Suspect]
     Active Substance: PEMETREXED
     Indication: Product used for unknown indication
     Route: 065
  2. RYBREVANT [Suspect]
     Active Substance: AMIVANTAMAB-VMJW
     Indication: Product used for unknown indication
     Route: 065

REACTIONS (6)
  - Face oedema [Not Recovered/Not Resolved]
  - Rash [Not Recovered/Not Resolved]
  - Dermatitis acneiform [Unknown]
  - Periorbital swelling [Unknown]
  - Swelling face [Unknown]
  - Off label use [Unknown]

NARRATIVE: CASE EVENT DATE: 20241206
